FAERS Safety Report 6501026-4 (Version None)
Quarter: 2009Q4

REPORT INFORMATION
  Report Type: 
  Country: None (occurrence: None)
  Receive Date: 20091216
  Receipt Date: 20090603
  Transmission Date: 20100525
  Serious: No
  Sender: FDA-Public Use
  Company Number: A0788496A

PATIENT
  Age: 31 Year
  Sex: Male

DRUGS (1)
  1. COMMIT [Suspect]

REACTIONS (1)
  - DRUG INEFFECTIVE [None]
